FAERS Safety Report 14584086 (Version 1)
Quarter: 2018Q1

REPORT INFORMATION
  Report Type: Spontaneous
  Country: US (occurrence: US)
  Receive Date: 20180228
  Receipt Date: 20180228
  Transmission Date: 20180509
  Serious: Yes (Hospitalization, Other)
  Sender: FDA-Public Use
  Company Number: US-BAUSCH-DSA_42996_2010

PATIENT
  Age: 38 Year
  Sex: Female

DRUGS (1)
  1. HERBESSER-SLOW RELEASE [Suspect]
     Active Substance: DILTIAZEM HYDROCHLORIDE
     Indication: SUICIDE ATTEMPT
     Dosage: EXTENDED RELEASE, ONCE
     Route: 048

REACTIONS (11)
  - Toxicity to various agents [Unknown]
  - Shock [None]
  - Hypotension [None]
  - Intentional overdose [None]
  - Multiple organ dysfunction syndrome [None]
  - Metabolic acidosis [None]
  - Continuous haemodiafiltration [None]
  - Bradycardia [None]
  - Arrhythmia [None]
  - Acute respiratory distress syndrome [None]
  - Acute kidney injury [None]
